FAERS Safety Report 8972199 (Version 1)
Quarter: 2012Q4

REPORT INFORMATION
  Report Type: 
  Country: US (occurrence: US)
  Receive Date: 20121219
  Receipt Date: 20121219
  Transmission Date: 20130627
  Serious: Yes (Other)
  Sender: FDA-Public Use
  Company Number: US-MYLANLABS-2012S1006306

PATIENT
  Age: 30 Year
  Sex: Male
  Weight: 73.94 kg

DRUGS (9)
  1. LEVETIRACETAM [Suspect]
     Indication: CONVULSION
     Route: 048
     Dates: start: 201203
  2. LEVETIRACETAM [Suspect]
     Indication: EPILEPSY
     Route: 048
     Dates: start: 201203
  3. LEVETIRACETAM [Suspect]
     Indication: CONVULSION
     Route: 048
     Dates: start: 201203
  4. LEVETIRACETAM [Suspect]
     Indication: EPILEPSY
     Route: 048
     Dates: start: 201203
  5. KEPPRA [Suspect]
     Indication: CONVULSION
     Route: 048
     Dates: end: 201202
  6. LAMICTAL [Concomitant]
     Route: 048
     Dates: start: 1999
  7. DIAMOX [Concomitant]
     Route: 048
     Dates: start: 1999
  8. ADVIL [Concomitant]
     Indication: HEADACHE
  9. DEPAKOTE [Concomitant]

REACTIONS (3)
  - Drug ineffective [Not Recovered/Not Resolved]
  - Convulsion [Not Recovered/Not Resolved]
  - Somnolence [Not Recovered/Not Resolved]
